FAERS Safety Report 8011629-6 (Version None)
Quarter: 2011Q4

REPORT INFORMATION
  Report Type: 
  Country: None (occurrence: None)
  Receive Date: 20111228
  Receipt Date: 20111219
  Transmission Date: 20120403
  Serious: Yes (Other)
  Sender: FDA-Public Use
  Company Number: US-BAYER-2011-100447

PATIENT
  Age: 30 Year
  Sex: Female

DRUGS (9)
  1. CONTRACEPTIVES NOS [Concomitant]
     Indication: PREMENSTRUAL SYNDROME
     Dosage: UNK
     Dates: start: 20070101, end: 20080101
  2. MULTI-VITAMIN [Concomitant]
  3. IMITREX [Concomitant]
     Indication: MIGRAINE
     Dosage: UNK
     Dates: start: 19930101
  4. ATENOLOL [Concomitant]
     Dosage: 25 MG, DAILY
  5. ZOLOFT [Concomitant]
     Indication: DEPRESSION
     Dosage: 50 MG, DAILY
  6. NSAID'S [Concomitant]
  7. YAZ [Suspect]
     Indication: PREMENSTRUAL SYNDROME
     Dosage: UNK
     Route: 048
     Dates: start: 20070101, end: 20080101
  8. YAZ [Suspect]
     Indication: CONTRACEPTION
  9. YASMIN [Suspect]
     Dosage: UNK
     Route: 048
     Dates: start: 20070101, end: 20080101

REACTIONS (2)
  - CHOLECYSTECTOMY [None]
  - CHOLECYSTITIS CHRONIC [None]
